FAERS Safety Report 8435423-7 (Version None)
Quarter: 2012Q2

REPORT INFORMATION
  Report Type: 
  Country: None (occurrence: None)
  Receive Date: 20120614
  Receipt Date: 20120608
  Transmission Date: 20120825
  Serious: Yes (Disabling)
  Sender: FDA-Public Use
  Company Number: FR-BRISTOL-MYERS SQUIBB COMPANY-16660128

PATIENT
  Age: 52 Year
  Sex: Female
  Weight: 50 kg

DRUGS (4)
  1. ABILIFY [Suspect]
     Indication: BORDERLINE PERSONALITY DISORDER
     Route: 048
     Dates: start: 20120214
  2. VALDOXAN [Concomitant]
     Indication: DEPRESSIVE SYMPTOM
     Dosage: TAB
     Route: 048
     Dates: start: 20120214
  3. PRAZEPAM [Concomitant]
     Indication: ANXIETY
     Dosage: TABLET
     Route: 048
     Dates: start: 20120214
  4. PRAZEPAM [Concomitant]
     Indication: INSOMNIA
     Dosage: TABLET
     Route: 048
     Dates: start: 20120214

REACTIONS (3)
  - ANORGASMIA [None]
  - OFF LABEL USE [None]
  - LIBIDO DECREASED [None]
